FAERS Safety Report 10217136 (Version 2)
Quarter: 2014Q2

REPORT INFORMATION
  Report Type: Spontaneous
  Country: US (occurrence: US)
  Receive Date: 20140604
  Receipt Date: 20140626
  Transmission Date: 20141212
  Serious: Yes (Other)
  Sender: FDA-Public Use
  Company Number: PHEH2014US011056

PATIENT
  Sex: Female
  Weight: 57.2 kg

DRUGS (2)
  1. TOBI PODHALER [Suspect]
     Indication: CYSTIC FIBROSIS
     Dosage: 28 MG, BID (4 CAPSULES)
     Route: 055
     Dates: start: 201309
  2. TOBI PODHALER [Suspect]
     Indication: PSEUDOMONAS INFECTION

REACTIONS (2)
  - Infectious mononucleosis [Recovered/Resolved]
  - Aphonia [Unknown]
